FAERS Safety Report 5068766-8 (Version None)
Quarter: 2006Q3

REPORT INFORMATION
  Report Type: 
  Country: None (occurrence: None)
  Receive Date: 20060802
  Receipt Date: 20060322
  Transmission Date: 20061208
  Serious: No
  Sender: FDA-Public Use
  Company Number: US-BRISTOL-MYERS SQUIBB COMPANY-13322748

PATIENT
  Age: 61 Year
  Sex: Male
  Weight: 102 kg

DRUGS (5)
  1. COUMADIN [Suspect]
     Indication: PULMONARY EMBOLISM
     Dates: start: 20050801
  2. TOPROL-XL [Concomitant]
     Dates: start: 20051201
  3. NORVASC [Concomitant]
     Dates: start: 20051201
  4. WELLBUTRIN XL [Concomitant]
     Dates: start: 20051201
  5. LAMICTAL [Concomitant]
     Dates: start: 20051201

REACTIONS (1)
  - BLOOD CHOLESTEROL INCREASED [None]
